FAERS Safety Report 7930114-0 (Version None)
Quarter: 2011Q4

REPORT INFORMATION
  Report Type: 
  Country: None (occurrence: None)
  Receive Date: 20111121
  Receipt Date: 20111115
  Transmission Date: 20120403
  Serious: Yes (Other)
  Sender: FDA-Public Use
  Company Number: US-GENZYME-THYM-1002906

PATIENT
  Age: 58 Year
  Sex: Male

DRUGS (6)
  1. PREDNISOLONE [Concomitant]
     Indication: PRODUCT USED FOR UNKNOWN INDICATION
  2. OXYCODONE HCL [Concomitant]
     Indication: PRODUCT USED FOR UNKNOWN INDICATION
     Dosage: UNK
  3. THYMOGLOBULIN [Suspect]
     Indication: PROPHYLAXIS AGAINST TRANSPLANT REJECTION
     Dosage: 150 MG, QD
     Route: 042
     Dates: start: 20111113, end: 20111114
  4. MYCOPHENOLATE MOFETIL (CELLCEPT) [Concomitant]
     Indication: PRODUCT USED FOR UNKNOWN INDICATION
  5. FAMVIR [Concomitant]
     Indication: PRODUCT USED FOR UNKNOWN INDICATION
  6. BACTRIM [Concomitant]
     Indication: PRODUCT USED FOR UNKNOWN INDICATION

REACTIONS (1)
  - MYOCARDIAL INFARCTION [None]
